FAERS Safety Report 5354059-8 (Version None)
Quarter: 2007Q2

REPORT INFORMATION
  Report Type: 
  Country: None (occurrence: None)
  Receive Date: 20070612
  Receipt Date: 20070608
  Transmission Date: 20071010
  Serious: Yes (Other)
  Sender: FDA-Public Use
  Company Number: A0654842A

PATIENT
  Age: 28 Year
  Sex: Male

DRUGS (3)
  1. WELLBUTRIN [Suspect]
     Route: 048
  2. ZYBAN [Suspect]
     Route: 048
  3. NO CONCURRENT MEDICATION [Concomitant]

REACTIONS (2)
  - AGGRESSION [None]
  - HIV INFECTION [None]
